FAERS Safety Report 4434223-2 (Version None)
Quarter: 2004Q3

REPORT INFORMATION
  Report Type: 
  Country: None (occurrence: None)
  Receive Date: 20040825
  Receipt Date: 20040806
  Transmission Date: 20050211
  Serious: Yes (Hospitalization, Other)
  Sender: FDA-Public Use
  Company Number: GBS040815381

PATIENT
  Weight: 68 kg

DRUGS (2)
  1. GEMCITABINE HYDROCHLORIDE-IV (GEMCITABINE) [Suspect]
     Indication: NON-SMALL CELL LUNG CANCER
     Dosage: 2200 MG
     Dates: start: 20030220, end: 20030516
  2. CARBOPLATIN [Concomitant]

REACTIONS (1)
  - OESOPHAGITIS [None]
